FAERS Safety Report 5115631-3 (Version None)
Quarter: 2006Q3

REPORT INFORMATION
  Report Type: 
  Country: None (occurrence: None)
  Receive Date: 20060927
  Receipt Date: 20060714
  Transmission Date: 20061208
  Serious: Yes (Death)
  Sender: FDA-Public Use
  Company Number: PHEH2006US09097

PATIENT
  Age: 76 Year
  Sex: Male

DRUGS (15)
  1. EXJADE [Suspect]
     Indication: BLOOD IRON INCREASED
     Dosage: 2000 MG, QD
     Route: 048
     Dates: start: 20060620, end: 20060702
  2. ASPIRIN [Concomitant]
     Indication: ARTERIOSCLEROSIS CORONARY ARTERY
     Dosage: 81 MG, QD
     Route: 048
  3. PLAVIX [Concomitant]
     Indication: ARTERIOSCLEROSIS CORONARY ARTERY
     Dosage: 75 MG, QD
     Route: 048
     Dates: start: 20050901
  4. IMDUR [Concomitant]
     Indication: ARTERIOSCLEROSIS CORONARY ARTERY
     Dosage: 30 MG, QD
  5. LASIX [Concomitant]
     Indication: ARTERIOSCLEROSIS CORONARY ARTERY
     Dosage: 40 MG, QD
  6. CASPOFUNGIN [Concomitant]
  7. VANCOMYCIN [Concomitant]
  8. CEFEPIME [Concomitant]
  9. TOBRADEX [Concomitant]
  10. NEOMYCIN [Concomitant]
  11. ISORDIL [Concomitant]
     Dosage: 40 MG, QD
     Route: 048
  12. NEUPOGEN [Concomitant]
     Dosage: 480 UNK, UNK
     Route: 058
  13. ALLEGRA [Concomitant]
     Dosage: 180 MG, QD
  14. FAMCICLOVIR [Concomitant]
     Dosage: 500 MG, BID
     Route: 048
  15. ATENOLOL [Concomitant]
     Dosage: 25 MG, QD

REACTIONS (24)
  - AZOTAEMIA [None]
  - BLOOD CREATININE INCREASED [None]
  - BLOOD SODIUM DECREASED [None]
  - BLOOD UREA INCREASED [None]
  - BONE MARROW FAILURE [None]
  - COMPUTERISED TOMOGRAM ABNORMAL [None]
  - CONJUNCTIVAL HAEMORRHAGE [None]
  - EXOPHTHALMOS [None]
  - HAEMOGLOBIN DECREASED [None]
  - HEADACHE [None]
  - LETHARGY [None]
  - MUCORMYCOSIS [None]
  - MULTI-ORGAN DISORDER [None]
  - NEPHRITIS INTERSTITIAL [None]
  - NUCLEAR MAGNETIC RESONANCE IMAGING ABNORMAL [None]
  - ORBITAL INFECTION [None]
  - PANCYTOPENIA [None]
  - PAROPHTHALMIA [None]
  - PLATELET COUNT DECREASED [None]
  - PYREXIA [None]
  - RENAL TUBULAR NECROSIS [None]
  - SINUS OPERATION [None]
  - SINUSITIS [None]
  - URINE SODIUM ABNORMAL [None]
